FAERS Safety Report 25095519 (Version 1)
Quarter: 2025Q1

REPORT INFORMATION
  Report Type: Spontaneous
  Country: US (occurrence: US)
  Receive Date: 20250319
  Receipt Date: 20250319
  Transmission Date: 20250408
  Serious: Yes (Hospitalization, Other)
  Sender: FRESENIUS KABI
  Company Number: US-FreseniusKabi-FK202504167

PATIENT
  Age: 73 Year
  Sex: Male

DRUGS (11)
  1. MITOMYCIN C [Suspect]
     Active Substance: MITOMYCIN
     Indication: Glaucoma drainage device placement
  2. MITOMYCIN C [Suspect]
     Active Substance: MITOMYCIN
     Indication: Pseudophakic glaucoma
  3. LIDOCAINE [Concomitant]
     Active Substance: LIDOCAINE
     Indication: Glaucoma drainage device placement
  4. LIDOCAINE [Concomitant]
     Active Substance: LIDOCAINE
     Indication: Pseudophakic glaucoma
  5. LIDOCAINE [Concomitant]
     Active Substance: LIDOCAINE
     Indication: Anaesthetic ophthalmic procedure
  6. CEFUROXIME [Concomitant]
     Active Substance: CEFUROXIME
     Indication: Glaucoma drainage device placement
  7. CEFUROXIME [Concomitant]
     Active Substance: CEFUROXIME
     Indication: Pseudophakic glaucoma
  8. CEFUROXIME [Concomitant]
     Active Substance: CEFUROXIME
     Indication: Anaesthetic ophthalmic procedure
  9. DEXAMETHASONE [Concomitant]
     Active Substance: DEXAMETHASONE
     Indication: Glaucoma drainage device placement
     Route: 057
  10. DEXAMETHASONE [Concomitant]
     Active Substance: DEXAMETHASONE
     Indication: Pseudophakic glaucoma
  11. DEXAMETHASONE [Concomitant]
     Active Substance: DEXAMETHASONE
     Indication: Anaesthetic ophthalmic procedure

REACTIONS (2)
  - Retinal toxicity [Recovering/Resolving]
  - Wrong technique in product usage process [Unknown]
